FAERS Safety Report 19080530 (Version 2)
Quarter: 2021Q2

REPORT INFORMATION
  Report Type: Other
  Country: US (occurrence: US)
  Receive Date: 20210331
  Receipt Date: 20210401
  Transmission Date: 20210717
  Serious: Yes (Other)
  Sender: FDA-Public Use
  Company Number: US-ROCHE-2800648

PATIENT
  Sex: Female

DRUGS (2)
  1. OCREVUS [Suspect]
     Active Substance: OCRELIZUMAB
     Indication: MULTIPLE SCLEROSIS
     Dosage: INFUSE 600MG INTRAVENOUSLY EVERY 6 MONTH(S)?ON 19/MAR/2020 AND 21/SEP/2020, SHE RECEIVED OCRELIZUMAB
     Route: 042
     Dates: start: 20200305
  2. OCREVUS [Suspect]
     Active Substance: OCRELIZUMAB
     Indication: RELAPSING MULTIPLE SCLEROSIS

REACTIONS (1)
  - Pulmonary thrombosis [Unknown]
